FAERS Safety Report 5319231-1 (Version None)
Quarter: 2007Q1

REPORT INFORMATION
  Report Type: 
  Country: None (occurrence: None)
  Receive Date: 20070202
  Receipt Date: 20060815
  Transmission Date: 20070707
  Serious: No
  Sender: FDA-Public Use
  Company Number: 256143

PATIENT
  Age: 16 Year
  Sex: Female
  Weight: 63.5 kg

DRUGS (6)
  1. NOVOLOG [Suspect]
     Indication: DIABETES MELLITUS INSULIN-DEPENDENT
     Dosage: 24 IU + SLIDING SCALE, SUBCUTAN.-PUMP
     Route: 058
     Dates: start: 20050101
  2. PREDNISONE TAB [Concomitant]
  3. ZYRTEC [Concomitant]
  4. ZANTAC [Concomitant]
  5. ALLEGRA /01314201/ (FEXOFENADINE) [Concomitant]
  6. SINGULAIR /01362601/ (MONTELUKAST) [Concomitant]

REACTIONS (1)
  - HYPERSENSITIVITY [None]
